FAERS Safety Report 24296481 (Version 1)
Quarter: 2024Q3

REPORT INFORMATION
  Report Type: Spontaneous
  Country: ES (occurrence: ES)
  Receive Date: 20240909
  Receipt Date: 20240909
  Transmission Date: 20241016
  Serious: Yes (Other)
  Sender: CHEPLAPHARM
  Company Number: None

PATIENT
  Age: 68 Year
  Sex: Female
  Weight: 72 kg

DRUGS (1)
  1. OLANZAPINE [Suspect]
     Active Substance: OLANZAPINE
     Indication: Migraine
     Dosage: 1 PRESS EVERY DAY CRYNIC
     Dates: start: 20240129

REACTIONS (5)
  - Tremor [Recovered/Resolved]
  - Dizziness [Recovered/Resolved]
  - Breast discomfort [Recovered/Resolved]
  - Dry mouth [Recovered/Resolved]
  - Off label use [Recovered/Resolved]

NARRATIVE: CASE EVENT DATE: 20240129
